FAERS Safety Report 7414998-0 (Version None)
Quarter: 2011Q2

REPORT INFORMATION
  Report Type: 
  Country: None (occurrence: None)
  Receive Date: 20110414
  Receipt Date: 20110408
  Transmission Date: 20111010
  Serious: Yes (Other)
  Sender: FDA-Public Use
  Company Number: BR-ROCHE-661750

PATIENT
  Sex: Male
  Weight: 154 kg

DRUGS (3)
  1. CLOMIPRAMINE HYDROCHLORIDE [Suspect]
     Route: 065
     Dates: start: 20060101, end: 20070101
  2. RIVOTRIL [Suspect]
     Indication: RELAXATION THERAPY
     Dosage: FREQUENCY: 1 TABLET OF 2MG BEFORE SLEEP;
     Route: 048
     Dates: start: 20060101, end: 20100101
  3. CLOMIPRAMINE HYDROCHLORIDE [Suspect]
     Dosage: DOSE REDUCED
     Route: 065
     Dates: end: 20100101

REACTIONS (10)
  - BLOOD TRIGLYCERIDES INCREASED [None]
  - RENAL NEOPLASM [None]
  - INSOMNIA [None]
  - THYROID NEOPLASM [None]
  - LIBIDO DECREASED [None]
  - HYPERTENSION [None]
  - ERECTILE DYSFUNCTION [None]
  - BLOOD TESTOSTERONE DECREASED [None]
  - PNEUMONIA [None]
  - POLLAKIURIA [None]
